FAERS Safety Report 15640809 (Version 2)
Quarter: 2018Q4

REPORT INFORMATION
  Report Type: Spontaneous
  Country: MA (occurrence: MA)
  Receive Date: 20181120
  Receipt Date: 20181126
  Transmission Date: 20190205
  Serious: Yes (Hospitalization)
  Sender: FDA-Public Use
  Company Number: MA-PFIZER INC-2018477096

PATIENT
  Age: 60 Year
  Sex: Female

DRUGS (1)
  1. AMIODARONE HCL [Suspect]
     Active Substance: AMIODARONE HYDROCHLORIDE
     Indication: ARRHYTHMIA
     Dosage: 200 MG, ONCE DAILY
     Route: 065

REACTIONS (6)
  - Blood thyroid stimulating hormone increased [Recovered/Resolved]
  - Thyroid disorder [Unknown]
  - Seizure [Unknown]
  - Gastric disorder [Unknown]
  - Hypokalaemia [Unknown]
  - Hepatocellular injury [Unknown]
